FAERS Safety Report 5514901-4 (Version None)
Quarter: 2007Q4

REPORT INFORMATION
  Report Type: 
  Country: None (occurrence: None)
  Receive Date: 20071113
  Receipt Date: 20060926
  Transmission Date: 20080405
  Serious: No
  Sender: FDA-Public Use
  Company Number: A0621477A

PATIENT
  Age: 79 Year
  Sex: Male

DRUGS (7)
  1. COREG [Suspect]
     Dosage: 12.5MG TWICE PER DAY
     Route: 048
     Dates: start: 20060601
  2. PREVACID [Concomitant]
  3. ALTACE [Concomitant]
  4. ASPIRIN [Concomitant]
  5. ZOCOR [Concomitant]
  6. FUROSEMIDE [Concomitant]
  7. COUMADIN [Concomitant]

REACTIONS (2)
  - FATIGUE [None]
  - PHOTOSENSITIVITY REACTION [None]
